FAERS Safety Report 10881301 (Version 3)
Quarter: 2017Q3

REPORT INFORMATION
  Report Type: Report from Study
  Country: CA (occurrence: CA)
  Receive Date: 20150303
  Receipt Date: 20170824
  Transmission Date: 20171127
  Serious: Yes (Death, Other)
  Sender: FDA-Public Use
  Company Number: CA-ROCHE-769186

PATIENT

DRUGS (33)
  1. VP-16 [Suspect]
     Active Substance: ETOPOSIDE
     Indication: B-CELL LYMPHOMA REFRACTORY
     Dosage: FOR 4 DAYS
     Route: 065
  2. RITUXIMAB. [Suspect]
     Active Substance: RITUXIMAB
     Indication: B-CELL LYMPHOMA REFRACTORY
     Dosage: 2 SETS OF 4 WEEKLY RITUXIMAB AT 2 AND 6 MONTHS POST ASCT RESPECTIVELY
     Route: 042
  3. FILGRASTIM [Suspect]
     Active Substance: FILGRASTIM
     Indication: B-CELL LYMPHOMA RECURRENT
     Dosage: 7-10 DAYS
     Route: 065
  4. DOXORUBICIN [Suspect]
     Active Substance: DOXORUBICIN
     Indication: B-CELL LYMPHOMA REFRACTORY
     Dosage: DAY 1
     Route: 042
  5. FLUDARABINE [Suspect]
     Active Substance: FLUDARABINE PHOSPHATE
     Indication: B-CELL LYMPHOMA REFRACTORY
     Route: 065
  6. METHYLPREDNISOLONE. [Suspect]
     Active Substance: METHYLPREDNISOLONE
     Indication: B-CELL LYMPHOMA REFRACTORY
     Dosage: FOR 5 DAYS
     Route: 042
  7. ARA-C [Suspect]
     Active Substance: CYTARABINE
     Indication: B-CELL LYMPHOMA RECURRENT
  8. INTERFERON ALFA-2A [Suspect]
     Active Substance: INTERFERON ALFA-2A
     Indication: B-CELL LYMPHOMA REFRACTORY
  9. FILGRASTIM [Suspect]
     Active Substance: FILGRASTIM
     Indication: B-CELL LYMPHOMA REFRACTORY
  10. CISPLATIN. [Suspect]
     Active Substance: CISPLATIN
     Indication: B-CELL LYMPHOMA REFRACTORY
     Dosage: DAY 1 AND 2
     Route: 042
  11. VINCRISTINE [Suspect]
     Active Substance: VINCRISTINE
     Indication: B-CELL LYMPHOMA REFRACTORY
     Dosage: DAY 1
     Route: 042
  12. CYTARABINE. [Suspect]
     Active Substance: CYTARABINE
     Indication: B-CELL LYMPHOMA REFRACTORY
     Dosage: 2 ON DAY 2
     Route: 042
  13. DEXAMETHASONE. [Suspect]
     Active Substance: DEXAMETHASONE
     Indication: B-CELL LYMPHOMA REFRACTORY
     Dosage: FOR 4 DAYS
     Route: 048
  14. ETOPOSIDE. [Suspect]
     Active Substance: ETOPOSIDE
     Indication: B-CELL LYMPHOMA REFRACTORY
     Dosage: 2.4 G/M2 OVER 24 H DAYS -7 AND -6
     Route: 065
  15. RITUXIMAB. [Suspect]
     Active Substance: RITUXIMAB
     Dosage: FOR 6 WEEKS
     Route: 042
  16. PREDNISONE. [Suspect]
     Active Substance: PREDNISONE
     Indication: B-CELL LYMPHOMA RECURRENT
  17. METHYLPREDNISOLONE. [Suspect]
     Active Substance: METHYLPREDNISOLONE
     Indication: B-CELL LYMPHOMA RECURRENT
  18. INTERFERON ALFA-2A [Suspect]
     Active Substance: INTERFERON ALFA-2A
     Indication: B-CELL LYMPHOMA RECURRENT
     Dosage: DOSE: 3 MU/M2 FOR 2 YEARS POST ASCT
     Route: 058
  19. CYCLOPHOSPHAMIDE. [Suspect]
     Active Substance: CYCLOPHOSPHAMIDE
     Indication: B-CELL LYMPHOMA REFRACTORY
     Dosage: DAY 1
     Route: 042
  20. VINCRISTINE [Suspect]
     Active Substance: VINCRISTINE
     Indication: B-CELL LYMPHOMA RECURRENT
  21. CYTARABINE. [Suspect]
     Active Substance: CYTARABINE
     Indication: B-CELL LYMPHOMA RECURRENT
  22. VP-16 [Suspect]
     Active Substance: ETOPOSIDE
     Indication: B-CELL LYMPHOMA RECURRENT
  23. CYCLOPHOSPHAMIDE. [Suspect]
     Active Substance: CYCLOPHOSPHAMIDE
     Indication: B-CELL LYMPHOMA RECURRENT
     Dosage: 1.8G/M2 OVER 2 H DAYS -6, -5, -4, AND -3
     Route: 065
  24. DOXORUBICIN [Suspect]
     Active Substance: DOXORUBICIN
     Indication: B-CELL LYMPHOMA RECURRENT
  25. PREDNISONE. [Suspect]
     Active Substance: PREDNISONE
     Indication: B-CELL LYMPHOMA REFRACTORY
     Dosage: DAY 1-5
     Route: 048
  26. CISPLATIN. [Suspect]
     Active Substance: CISPLATIN
     Indication: B-CELL LYMPHOMA RECURRENT
     Dosage: BY 24-H INFUSION FOR 4 DAYS
     Route: 042
  27. ETOPOSIDE. [Suspect]
     Active Substance: ETOPOSIDE
     Indication: B-CELL LYMPHOMA RECURRENT
  28. RITUXIMAB. [Suspect]
     Active Substance: RITUXIMAB
     Indication: B-CELL LYMPHOMA RECURRENT
     Dosage: IN VIVO PURGING 3-5 DAYS PRE-STEM CELL COLLECTION. SINGLE OR 3 INFUSION
     Route: 042
  29. DEXAMETHASONE. [Suspect]
     Active Substance: DEXAMETHASONE
     Indication: B-CELL LYMPHOMA RECURRENT
  30. FLUDARABINE [Suspect]
     Active Substance: FLUDARABINE PHOSPHATE
     Indication: B-CELL LYMPHOMA RECURRENT
  31. ARA-C [Suspect]
     Active Substance: CYTARABINE
     Indication: B-CELL LYMPHOMA REFRACTORY
     Dosage: 2G/M2 OVER 2 TO 3 H ON DAY 5
     Route: 042
  32. BICNU [Suspect]
     Active Substance: CARMUSTINE
     Indication: B-CELL LYMPHOMA REFRACTORY
     Dosage: 0.45 G/M2 OVER 4 H DAY-2
     Route: 065
  33. BICNU [Suspect]
     Active Substance: CARMUSTINE
     Indication: B-CELL LYMPHOMA RECURRENT

REACTIONS (23)
  - Myelodysplastic syndrome [Fatal]
  - Acute myeloid leukaemia [Fatal]
  - Colorectal adenocarcinoma [Unknown]
  - Hypogammaglobulinaemia [Unknown]
  - Fungal infection [Unknown]
  - Atrial fibrillation [Unknown]
  - Squamous cell carcinoma [Unknown]
  - Respiratory tract infection [Unknown]
  - Fatigue [Unknown]
  - Thrombocytopenic purpura [Unknown]
  - Infection [Fatal]
  - Non-small cell lung cancer [Fatal]
  - Interstitial lung disease [Unknown]
  - Bronchitis [Unknown]
  - Depression [Unknown]
  - Diffuse large B-cell lymphoma [Fatal]
  - Thyroid cancer [Unknown]
  - Pulmonary fibrosis [Unknown]
  - Herpes zoster [Unknown]
  - Respiratory disorder [Unknown]
  - Cytopenia [Unknown]
  - Haemolytic uraemic syndrome [Unknown]
  - Basal cell carcinoma [Unknown]
